FAERS Safety Report 19852961 (Version 1)
Quarter: 2021Q3

REPORT INFORMATION
  Report Type: Spontaneous
  Country: US (occurrence: US)
  Receive Date: 20210919
  Receipt Date: 20210919
  Transmission Date: 20211014
  Serious: Yes (Hospitalization, Other)
  Sender: FDA-Public Use
  Company Number: US-SA-2021SA300300

PATIENT

DRUGS (1)
  1. LEMTRADA [Suspect]
     Active Substance: ALEMTUZUMAB
     Dosage: UNK UNK, QM

REACTIONS (6)
  - Inappropriate schedule of product administration [Unknown]
  - Antibody test positive [Unknown]
  - Basedow^s disease [Unknown]
  - Drug monitoring procedure not performed [Unknown]
  - Autoimmune thyroiditis [Unknown]
  - Hospitalisation [Unknown]

NARRATIVE: CASE EVENT DATE: 2019
